FAERS Safety Report 24748343 (Version 1)
Quarter: 2024Q4

REPORT INFORMATION
  Report Type: Report from Study
  Country: FI (occurrence: FI)
  Receive Date: 20241218
  Receipt Date: 20241218
  Transmission Date: 20250115
  Serious: Yes (Other)
  Sender: MYLAN
  Company Number: FI-MYLANLABS-2024M1112942

PATIENT
  Age: 29 Year
  Sex: Male

DRUGS (1)
  1. CLOZAPINE [Suspect]
     Active Substance: CLOZAPINE
     Indication: Product used for unknown indication
     Dosage: UNK
     Route: 065
     Dates: start: 20241128

REACTIONS (5)
  - Pneumonia [Unknown]
  - Eosinophilia [Not Recovered/Not Resolved]
  - C-reactive protein increased [Unknown]
  - Pyrexia [Unknown]
  - Rash [Not Recovered/Not Resolved]

NARRATIVE: CASE EVENT DATE: 20241201
